FAERS Safety Report 8521017-1 (Version None)
Quarter: 2012Q3

REPORT INFORMATION
  Report Type: 
  Country: None (occurrence: None)
  Receive Date: 20120719
  Receipt Date: 20120718
  Transmission Date: 20120928
  Serious: Yes (Life-Threatening, Hospitalization)
  Sender: FDA-Public Use
  Company Number: CH-ROCHE-1084480

PATIENT
  Sex: Female
  Weight: 50 kg

DRUGS (7)
  1. PREDNISONE [Suspect]
  2. ACTEMRA [Suspect]
     Indication: TEMPORAL ARTERITIS
     Route: 042
     Dates: start: 20120601, end: 20120601
  3. METHOTREXATE [Suspect]
     Route: 048
  4. PREDNISONE [Suspect]
     Indication: TEMPORAL ARTERITIS
     Route: 048
     Dates: start: 20110901
  5. METHOTREXATE [Suspect]
     Indication: TEMPORAL ARTERITIS
     Route: 058
     Dates: start: 20120103, end: 20120529
  6. METHOTREXATE [Suspect]
  7. PREDNISONE [Suspect]

REACTIONS (1)
  - ALVEOLITIS [None]
